FAERS Safety Report 5312147-6 (Version None)
Quarter: 2007Q2

REPORT INFORMATION
  Report Type: 
  Country: None (occurrence: None)
  Receive Date: 20070430
  Receipt Date: 20061116
  Transmission Date: 20071010
  Serious: No
  Sender: FDA-Public Use
  Company Number: 2006UW17504

PATIENT
  Age: 63 Year
  Sex: Female

DRUGS (8)
  1. NEXIUM [Suspect]
     Route: 048
     Dates: start: 20060703
  2. TOPROL-XL [Concomitant]
     Route: 048
  3. LIPITOR [Concomitant]
  4. IMDUR [Concomitant]
  5. RESTORIL [Concomitant]
  6. NORVASC [Concomitant]
  7. ZOLOFT [Concomitant]
  8. AMARYL [Concomitant]

REACTIONS (2)
  - PHARMACEUTICAL PRODUCT COMPLAINT [None]
  - STOMACH DISCOMFORT [None]
